FAERS Safety Report 4649095-0 (Version None)
Quarter: 2005Q2

REPORT INFORMATION
  Report Type: 
  Country: None (occurrence: None)
  Receive Date: 20050429
  Receipt Date: 20050425
  Transmission Date: 20051028
  Serious: Yes (Other)
  Sender: FDA-Public Use
  Company Number: 200510455BWH

PATIENT
  Age: 47 Year
  Sex: Female

DRUGS (6)
  1. ADVAIR DISKUS 100/50 [Suspect]
     Indication: PNEUMONIA
     Dosage: 1PUFF TWICE PER DAY
     Route: 055
     Dates: start: 20050305, end: 20050308
  2. AVELOX [Suspect]
     Indication: PNEUMONIA
     Route: 048
     Dates: start: 20050305, end: 20050308
  3. ZINC [Concomitant]
  4. ELAVIL [Concomitant]
     Route: 048
  5. CALCIUM GLUCONATE [Concomitant]
  6. MAGNESIUM [Concomitant]

REACTIONS (11)
  - APHASIA [None]
  - CEREBROVASCULAR ACCIDENT [None]
  - CONFUSIONAL STATE [None]
  - DYSPHEMIA [None]
  - FEELING JITTERY [None]
  - HEADACHE [None]
  - RED BLOOD CELL SEDIMENTATION RATE INCREASED [None]
  - SPEECH DISORDER [None]
  - VASCULITIS [None]
  - VIRAL INFECTION [None]
  - VISUAL DISTURBANCE [None]
